FAERS Safety Report 6454725-7 (Version None)
Quarter: 2009Q4

REPORT INFORMATION
  Report Type: 
  Country: None (occurrence: None)
  Receive Date: 20091118
  Receipt Date: 20091111
  Transmission Date: 20100525
  Serious: Yes (Death)
  Sender: FDA-Public Use
  Company Number: 2009US004080

PATIENT
  Age: 53 Year
  Sex: Male

DRUGS (6)
  1. PROGRAF [Suspect]
     Indication: RENAL TRANSPLANT
     Dosage: 6 MG, UID/QD, ORAL
     Route: 048
     Dates: start: 20080201, end: 20090601
  2. PREDNISOLONE [Concomitant]
  3. MYCOPHENOLATE MOFETIL [Concomitant]
  4. NIFEDIPINE [Concomitant]
  5. ASPIRIN [Concomitant]
  6. CALCIO (CALCIUM) [Concomitant]

REACTIONS (1)
  - DEATH [None]
